FAERS Safety Report 4439963-7 (Version None)
Quarter: 2004Q3

REPORT INFORMATION
  Report Type: 
  Country: None (occurrence: None)
  Receive Date: 20040902
  Receipt Date: 20040827
  Transmission Date: 20050211
  Serious: Yes (Death)
  Sender: FDA-Public Use
  Company Number: JP-JNJFOC-20040808961

PATIENT
  Age: 45 Year
  Sex: Female

DRUGS (27)
  1. LEVOFLOXACIN [Suspect]
     Indication: BRONCHOPNEUMONIA
     Dates: start: 20021004, end: 20021019
  2. ITRACONAZOLE [Suspect]
     Indication: ORAL CANDIDIASIS
  3. HALOPERIDOL [Suspect]
  4. HALOPERIDOL [Suspect]
     Indication: AGITATION
  5. AMOXICILLIN AND CLAVULANATE POTASSIUM [Suspect]
     Route: 042
  6. AMOXICILLIN AND CLAVULANATE POTASSIUM [Suspect]
     Indication: BRONCHOPNEUMONIA
     Route: 042
  7. PANTOPRAZOLE [Suspect]
     Indication: DRUG USE FOR UNKNOWN INDICATION
  8. NYSTATIN [Suspect]
     Indication: ORAL CANDIDIASIS
  9. DIAZEPAM [Suspect]
     Indication: AGITATION
  10. FUROSEMIDE [Concomitant]
     Indication: OLIGURIA
     Route: 049
     Dates: start: 20021004, end: 20021015
  11. CANREONATE [Concomitant]
     Indication: OLIGURIA
  12. RABEPRAZOLE SODIUM [Concomitant]
  13. METOCLOPRAMIDE [Concomitant]
  14. CALCIUM LACTOGLUCONATE CARBONATE [Concomitant]
  15. BETAMETHASONE [Concomitant]
  16. CEFACLOR [Concomitant]
  17. OMEPRAZOLE [Concomitant]
  18. CORTISONE ACETATE [Concomitant]
  19. CALCITRIOL [Concomitant]
  20. CALCITRIOL [Concomitant]
  21. CALCITRIOL [Concomitant]
  22. ALUMINUM MAGNESIUM HYDROXIDE [Concomitant]
     Route: 042
     Dates: start: 20021004, end: 20021019
  23. ALUMINUM MAGNESIUM HYDROXIDE [Concomitant]
     Route: 042
     Dates: start: 20021004, end: 20021019
  24. ALUMINUM MAGNESIUM HYDROXIDE [Concomitant]
     Route: 042
     Dates: start: 20021004, end: 20021019
  25. FLUDROCORTISONE ACETATE [Concomitant]
  26. CALCIUM GLUCONATE [Concomitant]
  27. KCL TAB [Concomitant]

REACTIONS (14)
  - AGITATION [None]
  - BRAIN OEDEMA [None]
  - ENTEROCOCCAL INFECTION [None]
  - HALLUCINATION [None]
  - HYPOCALCAEMIA [None]
  - HYPOKALAEMIA [None]
  - HYPOTENSION [None]
  - OLIGURIA [None]
  - PSEUDOMONAS INFECTION [None]
  - RENAL HAEMORRHAGE [None]
  - SEPTIC SHOCK [None]
  - STAPHYLOCOCCAL INFECTION [None]
  - TOXIC EPIDERMAL NECROLYSIS [None]
  - VOMITING [None]
